FAERS Safety Report 5127250-3 (Version None)
Quarter: 2006Q4

REPORT INFORMATION
  Report Type: 
  Country: None (occurrence: None)
  Receive Date: 20061010
  Receipt Date: 20060926
  Transmission Date: 20070319
  Serious: Yes (Hospitalization)
  Sender: FDA-Public Use
  Company Number: 2006RR-03895

PATIENT
  Age: 57 Year
  Sex: Female

DRUGS (1)
  1. IBUPROFEN [Suspect]

REACTIONS (1)
  - MENINGITIS ASEPTIC [None]
